FAERS Safety Report 6626290-2 (Version None)
Quarter: 2010Q1

REPORT INFORMATION
  Report Type: 
  Country: None (occurrence: None)
  Receive Date: 20100310
  Receipt Date: 20090424
  Transmission Date: 20100710
  Serious: No
  Sender: FDA-Public Use
  Company Number: US-ABBOTT-08P-163-0473338-00

PATIENT
  Sex: Female

DRUGS (3)
  1. LUPRON DEPOT [Suspect]
     Indication: UTERINE LEIOMYOMA
     Route: 030
     Dates: start: 20080501, end: 20080902
  2. UNSPECIFIED MEDICATION [Concomitant]
     Indication: HOT FLUSH
  3. UNSPECIFIED MEDICATION [Concomitant]
     Indication: MOOD SWINGS

REACTIONS (3)
  - HOT FLUSH [None]
  - NAUSEA [None]
  - PELVIC PAIN [None]
